FAERS Safety Report 13036854 (Version 1)
Quarter: 2016Q4

REPORT INFORMATION
  Report Type: Spontaneous
  Country: US (occurrence: US)
  Receive Date: 20161216
  Receipt Date: 20161216
  Transmission Date: 20170207
  Serious: No
  Sender: FDA-Public Use
  Company Number: US-JUBILANT HOLLISTERSTIER LLC-1060925

PATIENT
  Age: 50 Year
  Sex: Female

DRUGS (90)
  1. LIMA BEAN. [Suspect]
     Active Substance: LIMA BEAN
  2. EPICOCCUM NIGRUM. [Suspect]
     Active Substance: EPICOCCUM NIGRUM
  3. EPICOCCUM NIGRUM. [Suspect]
     Active Substance: EPICOCCUM NIGRUM
  4. EPICOCCUM NIGRUM. [Suspect]
     Active Substance: EPICOCCUM NIGRUM
  5. JOHNSON GRASS POLLEN [Suspect]
     Active Substance: SORGHUM HALEPENSE POLLEN
  6. STANDARDIZED PERENNIAL RYE GRASS [Suspect]
     Active Substance: LOLIUM PERENNE POLLEN
  7. POLLENS - WEEDS AND GARDEN PLANTS, PIGWEED, ROUGH REDROOT AMARANTHUS RETROFLEXUS [Suspect]
     Active Substance: AMARANTHUS RETROFLEXUS POLLEN
  8. RED MULBERRY POLLEN [Suspect]
     Active Substance: MORUS RUBRA POLLEN
  9. RED MULBERRY POLLEN [Suspect]
     Active Substance: MORUS RUBRA POLLEN
  10. GARLIC. [Suspect]
     Active Substance: GARLIC
  11. LAKE TROUT [Suspect]
     Active Substance: TROUT, UNSPECIFIED
  12. FLOUNDER [Suspect]
     Active Substance: FLOUNDER, UNSPECIFIED
  13. RHIZOPUS (RHIZOPUS STOLONIFER) [Suspect]
     Active Substance: RHIZOPUS STOLONIFER
  14. EASTERN WHITE PINE POLLEN [Suspect]
     Active Substance: PINUS STROBUS POLLEN
  15. OAK MIXTURE [Suspect]
     Active Substance: QUERCUS ALBA POLLEN\QUERCUS MACROCARPA POLLEN\QUERCUS MUEHLENBERGII POLLEN\QUERCUS PALUSTRIS POLLEN\QUERCUS RUBRA POLLEN\QUERCUS STELLATA POLLEN\QUERCUS VELUTINA POLLEN\QUERCUS VIRGINIANA POLLEN
  16. RED CEDAR POLLEN [Suspect]
     Active Substance: JUNIPERUS VIRGINIANA POLLEN
  17. EASTERN SYCAMORE POLLEN [Suspect]
     Active Substance: PLATANUS OCCIDENTALIS POLLEN
  18. MOUSE EPITHELIA [Suspect]
     Active Substance: MUS MUSCULUS SKIN
  19. FUSARIUM [Suspect]
     Active Substance: HAEMATONECTRIA HAEMATOCOCCA
  20. FUSARIUM [Suspect]
     Active Substance: HAEMATONECTRIA HAEMATOCOCCA
  21. JOHNSON GRASS POLLEN [Suspect]
     Active Substance: SORGHUM HALEPENSE POLLEN
  22. OAK MIXTURE [Suspect]
     Active Substance: QUERCUS ALBA POLLEN\QUERCUS MACROCARPA POLLEN\QUERCUS MUEHLENBERGII POLLEN\QUERCUS PALUSTRIS POLLEN\QUERCUS RUBRA POLLEN\QUERCUS STELLATA POLLEN\QUERCUS VELUTINA POLLEN\QUERCUS VIRGINIANA POLLEN
  23. BIRCH MIXTURE [Suspect]
     Active Substance: BETULA ALLEGHANIENSIS POLLEN\BETULA LENTA POLLEN\BETULA NIGRA POLLEN\BETULA OCCIDENTALIS POLLEN\BETULA PAPYRIFERA POLLEN\BETULA POPULIFOLIA POLLEN
  24. SHRIMP [Suspect]
     Active Substance: SHRIMP, UNSPECIFIED
  25. YELLOW SQUASH [Suspect]
     Active Substance: SQUASH
  26. TOMATO. [Suspect]
     Active Substance: TOMATO
  27. ENGLISH WALNUT FOOD [Suspect]
     Active Substance: ENGLISH WALNUT
  28. INSECTS (WHOLE BODY) COCKROACH MIX [Suspect]
     Active Substance: BLATELLA GERMANICA\PERIPLANETA AMERICANA
  29. ORRIS ROOT [Suspect]
     Active Substance: IRIS GERMANICA VAR. FLORENTINA ROOT
  30. PENICILLIUM MIXTURE [Suspect]
     Active Substance: PENICILLIUM CAMEMBERTI\PENICILLIUM CHRYSOGENUM VAR. CHRYSOGENUM\PENICILLIUM EXPANSUM\PENICILLIUM ITALICUM\PENICILLIUM ROQUEFORTI
  31. BERMUDA GRASS, STANDARDIZED [Suspect]
     Active Substance: CYNODON DACTYLON POLLEN
  32. KENTUCKY BLUEGRASS (JUNE), STANDARDIZED [Suspect]
     Active Substance: POA PRATENSIS POLLEN
  33. ENGLISH PLANTAIN POLLEN [Suspect]
     Active Substance: PLANTAGO LANCEOLATA POLLEN
  34. ENGLISH PLANTAIN POLLEN [Suspect]
     Active Substance: PLANTAGO LANCEOLATA POLLEN
  35. AMERICAN BEECH POLLEN [Suspect]
     Active Substance: FAGUS GRANDIFOLIA POLLEN
  36. ONION. [Suspect]
     Active Substance: ONION
  37. CACAO BEAN [Suspect]
     Active Substance: COCOA
  38. NEUROSPORA INTERMEDIA. [Suspect]
     Active Substance: NEUROSPORA INTERMEDIA
  39. CLADOSPORIUM [Suspect]
     Active Substance: CLADOSPORIUM HERBARUM
  40. POLLENS - WEEDS AND GARDEN PLANTS, PIGWEED, ROUGH REDROOT AMARANTHUS RETROFLEXUS [Suspect]
     Active Substance: AMARANTHUS RETROFLEXUS POLLEN
  41. PLACEBO [Suspect]
     Active Substance: UNSPECIFIED INGREDIENT
  42. EASTERN WHITE PINE POLLEN [Suspect]
     Active Substance: PINUS STROBUS POLLEN
  43. EASTERN WHITE PINE POLLEN [Suspect]
     Active Substance: PINUS STROBUS POLLEN
  44. ASH MIXTURE [Suspect]
     Active Substance: FRAXINUS AMERICANA POLLEN\FRAXINUS PENNSYLVANICA POLLEN
  45. POLLENS - TREES, GS EASTERN 10 TREE MIX [Suspect]
     Active Substance: ACER SACCHARUM POLLEN\BETULA NIGRA POLLEN\CARYA OVATA POLLEN\FAGUS GRANDIFOLIA POLLEN\FRAXINUS AMERICANA POLLEN\LIQUIDAMBAR STYRACIFLUA POLLEN\PLATANUS OCCIDENTALIS POLLEN\POPULUS DELTOIDES SUBSP. DELTOIDES POLLEN\QUERCUS RUBRA POLLEN\ULMUS AMERICANA POLLEN
  46. POSITIVE SKIN TEST CONTROL - HISTAMINE [Suspect]
     Active Substance: HISTAMINE
     Indication: ALLERGY TEST
  47. PECAN FOOD [Suspect]
     Active Substance: PECAN
  48. ALLERGEN PACK DOG EPITHELIA [Suspect]
     Active Substance: CANIS LUPUS FAMILIARIS SKIN\SODIUM CHLORIDE
  49. MIXED FEATHERS [Suspect]
     Active Substance: ANAS PLATYRHYNCHOS FEATHER\ANSER ANSER FEATHER\GALLUS GALLUS FEATHER
  50. CLADOSPORIUM [Suspect]
     Active Substance: CLADOSPORIUM HERBARUM
  51. MIXED ASPERGILLUS [Suspect]
     Active Substance: ASPERGILLUS FLAVUS VAR. ORYZAE\ASPERGILLUS NIGER VAR. NIGER\ASPERGILLUS REPENS\ASPERGILLUS TERREUS
  52. ASPERGILLUS NIGER VAR NIGER [Suspect]
     Active Substance: ASPERGILLUS NIGER VAR. NIGER
  53. AUREOBASIDIUM PULLULANS [Suspect]
     Active Substance: AUREOBASIDIUM PULLULANS VAR. PULLUTANS
  54. RHIZOPUS (RHIZOPUS STOLONIFER) [Suspect]
     Active Substance: RHIZOPUS STOLONIFER
  55. ORCHARD GRASS, STANDARDIZED [Suspect]
     Active Substance: DACTYLIS GLOMERATA POLLEN
  56. MEADOW FESCUE GRASS, STANDARDIZED [Suspect]
     Active Substance: FESTUCA PRATENSIS POLLEN
  57. STANDARDIZED GRASS POLLEN, SWEET VERNAL GRASS [Suspect]
     Active Substance: ANTHOXANTHUM ODORATUM POLLEN
  58. AMERICAN BEECH POLLEN [Suspect]
     Active Substance: FAGUS GRANDIFOLIA POLLEN
  59. OAK MIXTURE [Suspect]
     Active Substance: QUERCUS ALBA POLLEN\QUERCUS MACROCARPA POLLEN\QUERCUS MUEHLENBERGII POLLEN\QUERCUS PALUSTRIS POLLEN\QUERCUS RUBRA POLLEN\QUERCUS STELLATA POLLEN\QUERCUS VELUTINA POLLEN\QUERCUS VIRGINIANA POLLEN
  60. MAPLE POLLEN MIXTURE [Suspect]
     Active Substance: ACER RUBRUM POLLEN\ACER SACCHARINUM POLLEN\ACER SACCHARUM POLLEN
  61. PECAN POLLEN [Suspect]
     Active Substance: CARYA ILLINOINENSIS POLLEN
  62. PECAN POLLEN [Suspect]
     Active Substance: CARYA ILLINOINENSIS POLLEN
  63. BLACK WALNUT (JUGLANS NIGRA POLLEN) [Suspect]
     Active Substance: JUGLANS NIGRA POLLEN
  64. WHOLE EGG [Suspect]
     Active Substance: EGG
  65. FOOD - ANIMAL PRODUCTS AND POULTRY PRODUCTS, EGG, WHITE GALLUS SP. [Suspect]
     Active Substance: EGG WHITE
  66. CRAB [Suspect]
     Active Substance: CRAB LEG, UNSPECIFIED\OPILIO CRAB
  67. CRAB [Suspect]
     Active Substance: CRAB LEG, UNSPECIFIED\OPILIO CRAB
  68. LIMA BEAN. [Suspect]
     Active Substance: LIMA BEAN
  69. STANDARDIZED CAT HAIR [Suspect]
     Active Substance: FELIS CATUS HAIR
  70. PENICILLIUM MIXTURE [Suspect]
     Active Substance: PENICILLIUM CAMEMBERTI\PENICILLIUM CHRYSOGENUM VAR. CHRYSOGENUM\PENICILLIUM EXPANSUM\PENICILLIUM ITALICUM\PENICILLIUM ROQUEFORTI
  71. PENICILLIUM MIXTURE [Suspect]
     Active Substance: PENICILLIUM CAMEMBERTI\PENICILLIUM CHRYSOGENUM VAR. CHRYSOGENUM\PENICILLIUM EXPANSUM\PENICILLIUM ITALICUM\PENICILLIUM ROQUEFORTI
  72. AUREOBASIDIUM PULLULANS [Suspect]
     Active Substance: AUREOBASIDIUM PULLULANS VAR. PULLUTANS
  73. PHOMA (PLEOSPORA BETAE) [Suspect]
     Active Substance: PLEOSPORA BETAE
  74. EASTERN COTTONWOOD POLLEN [Suspect]
     Active Substance: POPULUS DELTOIDES POLLEN
  75. WHITE ALDER [Suspect]
     Active Substance: ALNUS RHOMBIFOLIA POLLEN
  76. RED CEDAR POLLEN [Suspect]
     Active Substance: JUNIPERUS VIRGINIANA POLLEN
  77. LAKE TROUT [Suspect]
     Active Substance: TROUT, UNSPECIFIED
  78. WHOLE WHEAT [Suspect]
     Active Substance: WHEAT
  79. LIMA BEAN. [Suspect]
     Active Substance: LIMA BEAN
  80. GREEN PEA [Suspect]
     Active Substance: PEA
  81. MOUSE EPITHELIA [Suspect]
     Active Substance: MUS MUSCULUS SKIN
  82. HAMSTER EPITHELIA [Suspect]
     Active Substance: MESOCRICETUS AURATUS SKIN
  83. NEUROSPORA INTERMEDIA. [Suspect]
     Active Substance: NEUROSPORA INTERMEDIA
  84. NEUROSPORA INTERMEDIA. [Suspect]
     Active Substance: NEUROSPORA INTERMEDIA
  85. AUREOBASIDIUM PULLULANS [Suspect]
     Active Substance: AUREOBASIDIUM PULLULANS VAR. PULLUTANS
  86. REDTOP GRASS, STANDARDIZED [Suspect]
     Active Substance: AGROSTIS GIGANTEA POLLEN
  87. POLLENS - WEEDS AND GARDEN PLANTS, PIGWEED, ROUGH REDROOT AMARANTHUS RETROFLEXUS [Suspect]
     Active Substance: AMARANTHUS RETROFLEXUS POLLEN
  88. EASTERN WHITE PINE POLLEN [Suspect]
     Active Substance: PINUS STROBUS POLLEN
  89. AMERICAN BEECH POLLEN [Suspect]
     Active Substance: FAGUS GRANDIFOLIA POLLEN
  90. OAK MIXTURE [Suspect]
     Active Substance: QUERCUS ALBA POLLEN\QUERCUS MACROCARPA POLLEN\QUERCUS MUEHLENBERGII POLLEN\QUERCUS PALUSTRIS POLLEN\QUERCUS RUBRA POLLEN\QUERCUS STELLATA POLLEN\QUERCUS VELUTINA POLLEN\QUERCUS VIRGINIANA POLLEN

REACTIONS (6)
  - Cough [Unknown]
  - Eye pruritus [Unknown]
  - Throat irritation [Unknown]
  - Swelling face [Unknown]
  - Pruritus [Unknown]
  - Eyelid oedema [Unknown]
